FAERS Safety Report 4649820-9 (Version None)
Quarter: 2005Q2

REPORT INFORMATION
  Report Type: 
  Country: None (occurrence: None)
  Receive Date: 20050427
  Receipt Date: 20050412
  Transmission Date: 20051028
  Serious: Yes (Death, Hospitalization)
  Sender: FDA-Public Use
  Company Number: MAG-2005-0000345

PATIENT
  Age: 70 Year
  Sex: Male

DRUGS (19)
  1. OXYCODONE HCL [Suspect]
     Indication: CANCER PAIN
     Dosage: 5 MG, DAILY, ORAL; 10 MG, DAILY, ORAL; 15 MG, DAILY, ORAL; 25 MG, DAILY, ORAL
     Route: 048
     Dates: start: 20041005, end: 20041005
  2. OXYCODONE HCL [Suspect]
     Indication: CANCER PAIN
     Dosage: 5 MG, DAILY, ORAL; 10 MG, DAILY, ORAL; 15 MG, DAILY, ORAL; 25 MG, DAILY, ORAL
     Route: 048
     Dates: start: 22041006, end: 20041121
  3. OXYCODONE HCL [Suspect]
     Indication: CANCER PAIN
     Dosage: 5 MG, DAILY, ORAL; 10 MG, DAILY, ORAL; 15 MG, DAILY, ORAL; 25 MG, DAILY, ORAL
     Route: 048
     Dates: start: 20041122, end: 20041207
  4. OXYCODONE HCL [Suspect]
     Indication: CANCER PAIN
     Dosage: 5 MG, DAILY, ORAL; 10 MG, DAILY, ORAL; 15 MG, DAILY, ORAL; 25 MG, DAILY, ORAL
     Route: 048
     Dates: start: 20041208, end: 20050108
  5. NAIXAN (NAPROXEN SODIUM) [Concomitant]
  6. CELESTAMINE TAB [Concomitant]
  7. MUCOSTA (REBAMIPIDE) [Concomitant]
  8. FAMOTIDINE [Concomitant]
  9. NOVAMIN (PROCHLORPERAZINE) [Concomitant]
  10. PURSENNID (SENNA LEAF) [Concomitant]
  11. PANTOSIN (PANTETHINE) [Concomitant]
  12. KAMAG G (MAGNESIUM OXIDE) [Concomitant]
  13. GEMZAR [Concomitant]
  14. DECADRON SRC [Concomitant]
  15. BUP-4 (PROPIVERINE HYDROCHLORIDE) [Concomitant]
  16. ROCEPHIN [Concomitant]
  17. LEVOFLOXACIN [Concomitant]
  18. LOXONIN (LOXOPROFEN SODIUM) [Concomitant]
  19. MORPHINE [Concomitant]

REACTIONS (7)
  - ANXIETY [None]
  - CONSTIPATION [None]
  - INSOMNIA [None]
  - LUNG ADENOCARCINOMA [None]
  - MALIGNANT NEOPLASM PROGRESSION [None]
  - ORAL INTAKE REDUCED [None]
  - TACHYCARDIA [None]
